FAERS Safety Report 7199474-5 (Version None)
Quarter: 2010Q4

REPORT INFORMATION
  Report Type: 
  Country: None (occurrence: None)
  Receive Date: 20101228
  Receipt Date: 20101214
  Transmission Date: 20110411
  Serious: Yes (Other)
  Sender: FDA-Public Use
  Company Number: PHHY2010US82346

PATIENT
  Sex: Female
  Weight: 66 kg

DRUGS (1)
  1. RECLAST [Suspect]
     Dosage: 5 MG, YEARLY
     Route: 042

REACTIONS (3)
  - ERYTHEMA [None]
  - NEPHROLITHIASIS [None]
  - PAIN IN EXTREMITY [None]
